FAERS Safety Report 7971048-5 (Version None)
Quarter: 2011Q4

REPORT INFORMATION
  Report Type: 
  Country: None (occurrence: None)
  Receive Date: 20111212
  Receipt Date: 20111212
  Transmission Date: 20120403
  Serious: Yes (Disabling)
  Sender: FDA-Public Use
  Company Number: None

PATIENT
  Age: 25 Year
  Sex: Female
  Weight: 97.522 kg

DRUGS (1)
  1. MIRENA [Suspect]
     Indication: CONTRACEPTION

REACTIONS (6)
  - IRRITABILITY [None]
  - HEADACHE [None]
  - LOSS OF LIBIDO [None]
  - MOOD SWINGS [None]
  - MUSCLE SPASMS [None]
  - ACNE [None]
